FAERS Safety Report 7928534-3 (Version None)
Quarter: 2011Q4

REPORT INFORMATION
  Report Type: 
  Country: None (occurrence: None)
  Receive Date: 20111118
  Receipt Date: 20111107
  Transmission Date: 20120403
  Serious: Yes (Other)
  Sender: FDA-Public Use
  Company Number: DE-BRISTOL-MYERS SQUIBB COMPANY-16217747

PATIENT
  Age: 74 Year
  Sex: Male

DRUGS (2)
  1. CISPLATIN [Suspect]
     Indication: PLEURAL MESOTHELIOMA
  2. PEMETREXED DISODIUM [Suspect]
     Indication: PLEURAL MESOTHELIOMA

REACTIONS (1)
  - ORGANISING PNEUMONIA [None]
